FAERS Safety Report 8456788-6 (Version None)
Quarter: 2012Q2

REPORT INFORMATION
  Report Type: 
  Country: None (occurrence: None)
  Receive Date: 20120621
  Receipt Date: 20120618
  Transmission Date: 20120825
  Serious: Yes (Hospitalization)
  Sender: FDA-Public Use
  Company Number: US-ACTELION-A-NJ2012-61259

PATIENT

DRUGS (3)
  1. TRACLEER [Suspect]
     Indication: PULMONARY ARTERIAL HYPERTENSION
     Dosage: UNK
     Route: 048
     Dates: start: 20110412
  2. REVATIO [Concomitant]
  3. TYVASO [Concomitant]

REACTIONS (4)
  - LOWER LIMB FRACTURE [None]
  - FATIGUE [None]
  - FLUID RETENTION [None]
  - FALL [None]
